FAERS Safety Report 24225104 (Version 1)
Quarter: 2024Q3

REPORT INFORMATION
  Report Type: Spontaneous
  Country: HU (occurrence: HU)
  Receive Date: 20240820
  Receipt Date: 20240820
  Transmission Date: 20241016
  Serious: Yes (Hospitalization, Other)
  Sender: BRISTOL MYERS SQUIBB
  Company Number: HU-BRISTOL-MYERS SQUIBB COMPANY-2024-126565

PATIENT
  Age: 69 Year
  Sex: Male

DRUGS (1)
  1. FEDRATINIB [Suspect]
     Active Substance: FEDRATINIB
     Indication: Splenomegaly

REACTIONS (1)
  - Nephropathy toxic [Unknown]
